FAERS Safety Report 6542735-0 (Version None)
Quarter: 2010Q1

REPORT INFORMATION
  Report Type: 
  Country: None (occurrence: None)
  Receive Date: 20100114
  Receipt Date: 20100106
  Transmission Date: 20100710
  Serious: Yes (Hospitalization)
  Sender: FDA-Public Use
  Company Number: 2010000051

PATIENT
  Age: 55 Year
  Sex: Male
  Weight: 84.8226 kg

DRUGS (9)
  1. PROVIGIL [Suspect]
     Indication: SLEEP APNOEA SYNDROME
     Dosage: 400 MG (200 MG, 2 IN 1 D), ORAL
     Route: 048
     Dates: start: 20060101
  2. PREVACID [Concomitant]
  3. VITAMIN + MINERALS (PYRIDOXINE HYDROCHLORIDE, CHOLINE, THIAMINE HYDROC [Concomitant]
  4. HYDROCODONE (HYDROCODONE) [Concomitant]
  5. URSODIOL [Concomitant]
  6. SPIRIVA [Concomitant]
  7. ASTELIN (DIPROPHYLLINE) [Concomitant]
  8. SYMBICORT [Concomitant]
  9. APIDRA [Concomitant]

REACTIONS (1)
  - OBESITY SURGERY [None]
